FAERS Safety Report 11229589 (Version 1)
Quarter: 2015Q2

REPORT INFORMATION
  Report Type: Report from Study
  Country: DE (occurrence: DE)
  Receive Date: 20150630
  Receipt Date: 20150630
  Transmission Date: 20150821
  Serious: Yes (Life-Threatening, Other)
  Sender: FDA-Public Use
  Company Number: DE-GILEAD-2015-0160891

PATIENT
  Age: 75 Year
  Sex: Male
  Weight: 74 kg

DRUGS (7)
  1. ATORVASTATIN [Concomitant]
     Active Substance: ATORVASTATIN
  2. RAMILICH [Concomitant]
     Active Substance: RAMIPRIL
  3. ASPIRIN. [Concomitant]
     Active Substance: ASPIRIN
  4. APIDRA [Concomitant]
     Active Substance: INSULIN GLULISINE
  5. INSUMAN [Concomitant]
     Active Substance: INSULIN HUMAN
  6. LEDIPASVIR/SOFOSBUVIR [Suspect]
     Active Substance: LEDIPASVIR\SOFOSBUVIR
     Indication: CHRONIC HEPATITIS C
     Dosage: 1 DF, UNK
     Route: 048
     Dates: start: 20140311
  7. ALLOPURINOL. [Concomitant]
     Active Substance: ALLOPURINOL

REACTIONS (1)
  - Cerebrovascular accident [Recovering/Resolving]

NARRATIVE: CASE EVENT DATE: 20150514
